FAERS Safety Report 20580162 (Version 1)
Quarter: 2022Q1

REPORT INFORMATION
  Report Type: Spontaneous
  Country: US (occurrence: None)
  Receive Date: 20220310
  Receipt Date: 20220310
  Transmission Date: 20220423
  Serious: No
  Sender: FDA-Public Use
  Company Number: 2022A066406

PATIENT
  Sex: Female
  Weight: 92.5 kg

DRUGS (2)
  1. FARXIGA [Suspect]
     Active Substance: DAPAGLIFLOZIN PROPANEDIOL
     Indication: Diabetes mellitus
     Route: 048
  2. FARXIGA [Suspect]
     Active Substance: DAPAGLIFLOZIN PROPANEDIOL
     Indication: Cardiac failure congestive
     Route: 048

REACTIONS (4)
  - Nausea [Unknown]
  - Vulvovaginal pruritus [Unknown]
  - Tenderness [Unknown]
  - Weight decreased [Unknown]
